FAERS Safety Report 14141813 (Version 2)
Quarter: 2017Q4

REPORT INFORMATION
  Report Type: Spontaneous
  Country: US (occurrence: US)
  Receive Date: 20171030
  Receipt Date: 20171110
  Transmission Date: 20180321
  Serious: Yes (Other)
  Sender: FDA-Public Use
  Company Number: US-ORION CORPORATION ORION PHARMA-ENT 2017-0163

PATIENT
  Age: 75 Year
  Sex: Male

DRUGS (1)
  1. COMTAN [Suspect]
     Active Substance: ENTACAPONE
     Dosage: STRENGTH: 200 MG, 4-5 TIMES, FOR MANY YEARS
     Route: 065

REACTIONS (3)
  - Choking [Unknown]
  - Product quality issue [Unknown]
  - Dysphagia [Unknown]
